FAERS Safety Report 17229313 (Version 2)
Quarter: 2022Q3

REPORT INFORMATION
  Report Type: Report from Study
  Country: CA (occurrence: CA)
  Receive Date: 20200103
  Receipt Date: 20220715
  Transmission Date: 20221027
  Serious: Yes (Other)
  Sender: FDA-Public Use
  Company Number: CA-PFIZER INC-2019562554

PATIENT
  Age: 69 Year
  Sex: Female

DRUGS (12)
  1. PREGABALIN [Suspect]
     Active Substance: PREGABALIN
     Indication: Pain in extremity
     Dosage: 1 DF, 2X/DAY
     Route: 048
  2. IRBESARTAN [Suspect]
     Active Substance: IRBESARTAN
     Indication: Hypertension
     Dosage: 1 DF, 1X/DAY
     Route: 048
  3. PRAMIPEXOLE DIHYDROCHLORIDE [Suspect]
     Active Substance: PRAMIPEXOLE DIHYDROCHLORIDE
     Indication: Pain in extremity
     Dosage: 1 DF, 2X/DAY
     Route: 048
  4. PRAMIPEXOLE [Suspect]
     Active Substance: PRAMIPEXOLE
     Indication: Pain in extremity
     Dosage: 1 DF, 2X/DAY (2 EVERY 1 DAYS)
     Route: 048
  5. CICLESONIDE [Concomitant]
     Active Substance: CICLESONIDE
     Indication: Asthma
     Dosage: 1 DF, 1X/DAY
     Route: 055
  6. METFORMIN HYDROCHLORIDE [Concomitant]
     Active Substance: METFORMIN HYDROCHLORIDE
     Indication: Type 2 diabetes mellitus
     Dosage: 1 DF, 2X/DAY
     Route: 048
  7. PANTOPRAZOLE SODIUM [Concomitant]
     Active Substance: PANTOPRAZOLE SODIUM
     Indication: Gastrooesophageal reflux disease
     Dosage: 1 DF, 1X/DAY
     Route: 048
  8. SYNTHROID [Concomitant]
     Active Substance: LEVOTHYROXINE SODIUM
     Indication: Hypothyroidism
     Dosage: 1 DF, 1X/DAY
     Route: 048
  9. VENTOLIN [Concomitant]
     Active Substance: ALBUTEROL SULFATE
     Indication: Asthma
     Dosage: 2 DF, UNK
     Route: 055
  10. ZENHALE [Concomitant]
     Active Substance: FORMOTEROL FUMARATE\MOMETASONE FUROATE
     Indication: Asthma
     Dosage: 1 DF, 2X/DAY
     Route: 055
  11. FORMOTEROL FUMARATE\MOMETASONE FUROATE [Concomitant]
     Active Substance: FORMOTEROL FUMARATE\MOMETASONE FUROATE
     Indication: Asthma
     Dosage: 1 DF, 2X/DAY (2 EVERY 1 DAYS)
     Route: 055
  12. SPIRIVA [Concomitant]
     Active Substance: TIOTROPIUM BROMIDE MONOHYDRATE
     Dosage: 2 DF, DAILY (1 EVERY 1 DAYS)
     Route: 065

REACTIONS (13)
  - Asthma [Not Recovered/Not Resolved]
  - Atrial fibrillation [Not Recovered/Not Resolved]
  - Breath sounds abnormal [Not Recovered/Not Resolved]
  - Bronchitis [Not Recovered/Not Resolved]
  - Bronchospasm [Not Recovered/Not Resolved]
  - Cough [Not Recovered/Not Resolved]
  - Dyspnoea [Not Recovered/Not Resolved]
  - Dyspnoea exertional [Not Recovered/Not Resolved]
  - Middle insomnia [Not Recovered/Not Resolved]
  - Productive cough [Not Recovered/Not Resolved]
  - Secretion discharge [Not Recovered/Not Resolved]
  - Sense of oppression [Not Recovered/Not Resolved]
  - Wheezing [Not Recovered/Not Resolved]
